FAERS Safety Report 7135248-9 (Version None)
Quarter: 2010Q4

REPORT INFORMATION
  Report Type: 
  Country: None (occurrence: None)
  Receive Date: 20101203
  Receipt Date: 20101123
  Transmission Date: 20110411
  Serious: Yes (Hospitalization)
  Sender: FDA-Public Use
  Company Number: A0779979A

PATIENT
  Age: 64 Year
  Sex: Male
  Weight: 79.5 kg

DRUGS (7)
  1. AVANDIA [Suspect]
     Dosage: 4MG PER DAY
     Route: 048
     Dates: end: 20070608
  2. ZOCOR [Concomitant]
  3. GLIPIZIDE [Concomitant]
  4. COZAAR [Concomitant]
  5. HYDROCHLOROTHIAZIDE [Concomitant]
  6. METFORMIN [Concomitant]
  7. INSULIN [Concomitant]

REACTIONS (3)
  - CARDIAC FAILURE CONGESTIVE [None]
  - CORONARY ARTERY DISEASE [None]
  - MYOCARDIAL INFARCTION [None]
